FAERS Safety Report 13732950 (Version 1)
Quarter: 2017Q3

REPORT INFORMATION
  Report Type: Spontaneous
  Country: US (occurrence: US)
  Receive Date: 20170707
  Receipt Date: 20170707
  Transmission Date: 20171127
  Serious: Yes (Other)
  Sender: FDA-Public Use
  Company Number: US-ROCHE-639257

PATIENT
  Sex: Male
  Weight: 65.5 kg

DRUGS (8)
  1. K-DUR [Concomitant]
     Active Substance: POTASSIUM CHLORIDE
     Route: 048
  2. VALCYTE [Suspect]
     Active Substance: VALGANCICLOVIR HYDROCHLORIDE
     Indication: INFECTION
     Route: 065
  3. CYTOVENE IV [Suspect]
     Active Substance: GANCICLOVIR SODIUM
     Indication: CYTOMEGALOVIRUS COLITIS
     Dosage: FORM: VIALS
     Route: 042
     Dates: start: 20090520, end: 20090531
  4. PREDNISONE. [Concomitant]
     Active Substance: PREDNISONE
     Indication: IMMUNOSUPPRESSION
     Route: 048
  5. FLORINEF ACETATE [Concomitant]
     Active Substance: FLUDROCORTISONE ACETATE
     Indication: IMMUNOSUPPRESSION
     Route: 048
  6. TACROLIMUS. [Concomitant]
     Active Substance: TACROLIMUS
     Indication: IMMUNOSUPPRESSION
     Route: 048
  7. FOSCARNET [Concomitant]
     Active Substance: FOSCARNET
     Route: 065
  8. NEXIUM [Concomitant]
     Active Substance: ESOMEPRAZOLE MAGNESIUM
     Indication: PROPHYLAXIS
     Dosage: INDICATION REPORTED AS PROPHYLAXIS GI
     Route: 048

REACTIONS (3)
  - Therapeutic response decreased [Unknown]
  - Cytomegalovirus colitis [Unknown]
  - Drug ineffective [Unknown]
